FAERS Safety Report 7753182-8 (Version None)
Quarter: 2011Q3

REPORT INFORMATION
  Report Type: 
  Country: None (occurrence: None)
  Receive Date: 20110915
  Receipt Date: 20110908
  Transmission Date: 20111222
  Serious: Yes (Other)
  Sender: FDA-Public Use
  Company Number: US-B.I. PHARMACEUTICALS,INC./RIDGEFIELD-2011-BP-21758BP

PATIENT
  Sex: Female

DRUGS (7)
  1. LASIX [Concomitant]
     Indication: FLUID RETENTION
     Route: 048
  2. LEVOTHYROXINE SODIUM [Concomitant]
     Indication: HYPOTHYROIDISM
     Route: 048
  3. ZOCOR [Concomitant]
     Indication: CARDIAC DISORDER
     Route: 048
  4. PRADAXA [Suspect]
     Indication: ATRIAL FIBRILLATION
     Dosage: 150 MG
     Route: 048
     Dates: start: 20100101
  5. NEURONTIN [Concomitant]
     Indication: NEUROPATHY PERIPHERAL
     Route: 048
  6. OXYTROL [Concomitant]
     Indication: URINARY INCONTINENCE
     Route: 048
  7. COREG [Concomitant]
     Indication: HYPERTENSION
     Route: 048

REACTIONS (3)
  - ABDOMINAL PAIN UPPER [None]
  - CHEST DISCOMFORT [None]
  - FOREIGN BODY [None]
